FAERS Safety Report 5105730-4 (Version None)
Quarter: 2006Q3

REPORT INFORMATION
  Report Type: 
  Country: None (occurrence: None)
  Receive Date: 20060915
  Receipt Date: 20060907
  Transmission Date: 20061208
  Serious: Yes (Other)
  Sender: FDA-Public Use
  Company Number: US-JNJFOC-20060902255

PATIENT
  Age: 59 Year
  Sex: Female
  Weight: 113.4 kg

DRUGS (1)
  1. ULTRAM [Suspect]
     Indication: SPINAL COLUMN STENOSIS
     Route: 048

REACTIONS (2)
  - CHEST PAIN [None]
  - PAINFUL RESPIRATION [None]
